FAERS Safety Report 6843832-2 (Version None)
Quarter: 2010Q3

REPORT INFORMATION
  Report Type: 
  Country: None (occurrence: None)
  Receive Date: 20100715
  Receipt Date: 20100708
  Transmission Date: 20110219
  Serious: Yes (Hospitalization)
  Sender: FDA-Public Use
  Company Number: US-SANOFI-AVENTIS-2010SA031845

PATIENT
  Age: 73 Year
  Sex: Male
  Weight: 76 kg

DRUGS (6)
  1. PLAVIX [Suspect]
     Route: 048
     Dates: end: 20100315
  2. ASPIRIN [Concomitant]
  3. LASIX [Concomitant]
  4. COREG [Concomitant]
  5. ALTACE [Concomitant]
  6. INTEGRILIN [Concomitant]

REACTIONS (5)
  - BRONCHIECTASIS [None]
  - DYSPNOEA [None]
  - HAEMOPTYSIS [None]
  - INTERSTITIAL LUNG DISEASE [None]
  - PULMONARY FIBROSIS [None]
